FAERS Safety Report 25250618 (Version 2)
Quarter: 2025Q3

REPORT INFORMATION
  Report Type: Report from Study
  Country: CA (occurrence: CA)
  Receive Date: 20250429
  Receipt Date: 20250805
  Transmission Date: 20251021
  Serious: Yes (Other)
  Sender: MERCK SHARP & DOHME LLC
  Company Number: CA-009507513-2279425

PATIENT
  Sex: Male

DRUGS (1)
  1. RECARBRIO [Suspect]
     Active Substance: CILASTATIN\IMIPENEM ANHYDROUS\RELEBACTAM ANHYDROUS
     Indication: Abdominal abscess
     Dosage: 750 MG IV Q6H X18 DAYS?CONCENTRATION: 1.25 G/FLASK
     Route: 042

REACTIONS (3)
  - Intestinal anastomosis [Unknown]
  - Abscess [Unknown]
  - Abscess drainage [Unknown]
